FAERS Safety Report 6446094-3 (Version None)
Quarter: 2009Q4

REPORT INFORMATION
  Report Type: 
  Country: None (occurrence: None)
  Receive Date: 20091118
  Receipt Date: 20091118
  Transmission Date: 20100525
  Serious: No
  Sender: FDA-Public Use
  Company Number: None

PATIENT

DRUGS (1)
  1. GERM-X ANTI-BACTERIAL SOFT WIPES [Suspect]

REACTIONS (3)
  - ANAESTHESIA [None]
  - DIZZINESS [None]
  - PRODUCT QUALITY ISSUE [None]
